FAERS Safety Report 7852763 (Version 8)
Quarter: 2012Q4

REPORT INFORMATION
  Report Type: 
  Country: US (occurrence: US)
  Receive Date: 20110311
  Receipt Date: 20121004
  Transmission Date: 20130627
  Serious: Yes (Hospitalization, Disabling, Other)
  Sender: FDA-Public Use
  Company Number: US-009507513-1103USA00996

PATIENT

DRUGS (10)
  1. FOSAMAX [Suspect]
     Indication: OSTEOPOROSIS
     Dosage: 10 mg, UNK
     Route: 048
     Dates: start: 199807, end: 20001001
  2. FOSAMAX [Suspect]
     Indication: OSTEOPOROSIS PROPHYLAXIS
     Dosage: 70 mg, UNK
     Route: 048
     Dates: start: 200010, end: 200802
  3. FOSAMAX [Suspect]
     Indication: OSTEOPOROSIS
     Dosage: 70 mg, UNK
     Route: 048
     Dates: start: 200802, end: 201006
  4. FOSAMAX [Suspect]
     Indication: OSTEOPOROSIS PROPHYLAXIS
  5. ALENDRONATE SODIUM [Suspect]
     Dosage: 70 mg, UNK
     Route: 048
     Dates: start: 20060202
  6. MK-9278 [Concomitant]
     Route: 048
     Dates: start: 1990
  7. CALCIUM (UNSPECIFIED) (+) VITAMIN D (UNSPECIFIED) [Concomitant]
     Route: 048
     Dates: start: 1990
  8. CALCIUM (UNSPECIFIED) (+) VITAMIN D (UNSPECIFIED) [Concomitant]
     Dosage: UNK
  9. OMEGA-3 MARINE TRIGLYCERIDES [Concomitant]
     Route: 048
     Dates: start: 1990
  10. HORMONES (UNSPECIFIED) [Concomitant]
     Route: 048
     Dates: start: 1997, end: 2002

REACTIONS (35)
  - Femur fracture [Not Recovered/Not Resolved]
  - Open reduction of fracture [Unknown]
  - Fracture nonunion [Unknown]
  - Bone graft [Unknown]
  - Post procedural haemorrhage [Unknown]
  - Fracture displacement [Unknown]
  - Device failure [Unknown]
  - Hip arthroplasty [Unknown]
  - Fracture nonunion [Unknown]
  - Stress fracture [Not Recovered/Not Resolved]
  - Osteoporosis [Not Recovered/Not Resolved]
  - Low turnover osteopathy [Not Recovered/Not Resolved]
  - Upper respiratory tract infection [Unknown]
  - Urinary tract infection [Unknown]
  - Femur fracture [Not Recovered/Not Resolved]
  - Diarrhoea [Unknown]
  - Type 2 diabetes mellitus [Unknown]
  - Hypercholesterolaemia [Unknown]
  - Adverse event [Unknown]
  - Injury [Unknown]
  - Injury [Unknown]
  - Weight decreased [Unknown]
  - Appendicectomy [Unknown]
  - Osteoarthritis [Unknown]
  - Peripheral vascular disorder [Unknown]
  - Diverticulum [Unknown]
  - Haemorrhoids [Unknown]
  - Anaemia [Unknown]
  - Gastrooesophageal reflux disease [Unknown]
  - Gastritis [Unknown]
  - Osteopenia [Unknown]
  - Hyperkeratosis [Unknown]
  - Atrophic vulvovaginitis [Unknown]
  - Rash [Unknown]
  - Gastritis [Unknown]
